FAERS Safety Report 20737764 (Version 1)
Quarter: 2022Q2

REPORT INFORMATION
  Report Type: Spontaneous
  Country: CA (occurrence: CA)
  Receive Date: 20220422
  Receipt Date: 20220422
  Transmission Date: 20220721
  Serious: Yes (Death, Hospitalization, Other)
  Sender: FDA-Public Use
  Company Number: CA-SAMSUNG BIOEPIS-SB-2022-09500

PATIENT
  Age: 72 Year
  Sex: Male
  Weight: 82 kg

DRUGS (3)
  1. INFLIXIMAB [Suspect]
     Active Substance: INFLIXIMAB
     Indication: Colitis ulcerative
     Route: 042
  2. AZATHIOPRINE [Concomitant]
     Active Substance: AZATHIOPRINE
     Indication: Product used for unknown indication
     Dosage: UNKNOWN
     Route: 065
  3. PREDNISONE [Concomitant]
     Active Substance: PREDNISONE
     Indication: Product used for unknown indication
     Route: 065

REACTIONS (23)
  - Death [Fatal]
  - Asthenia [Fatal]
  - Blood pressure diastolic increased [Fatal]
  - Blood pressure fluctuation [Fatal]
  - COVID-19 [Fatal]
  - Condition aggravated [Fatal]
  - Cough [Fatal]
  - Decreased appetite [Fatal]
  - Diarrhoea [Fatal]
  - Fatigue [Fatal]
  - Heart rate irregular [Fatal]
  - Hypertension [Fatal]
  - Illness [Fatal]
  - Nasopharyngitis [Fatal]
  - Ocular hyperaemia [Fatal]
  - Pneumonia [Fatal]
  - Productive cough [Fatal]
  - Pyrexia [Fatal]
  - Skin discolouration [Fatal]
  - Drug level below therapeutic [Fatal]
  - Inappropriate schedule of product administration [Fatal]
  - Intentional product use issue [Fatal]
  - Off label use [Fatal]
